FAERS Safety Report 8533378 (Version 1)
Quarter: 2020Q3

REPORT INFORMATION
  Report Type: Report from Study
  Country: US (occurrence: US)
  Receive Date: 20120427
  Receipt Date: 20120427
  Transmission Date: 20201105
  Serious: Yes (Other)
  Sender: FDA-Public Use
  Company Number: US-JNJFOC-20080400780

PATIENT
  Age: 54 Year
  Sex: Female

DRUGS (5)
  1. CHEMOTHERAPEUTIC AGENTS [Concomitant]
  2. PHOTOTHERAPY [Concomitant]
  3. INFLIXIMAB [Suspect]
     Active Substance: INFLIXIMAB
     Route: 042
  4. INFLIXIMAB [Suspect]
     Active Substance: INFLIXIMAB
     Indication: PSORIASIS
     Route: 042
     Dates: start: 20040225
  5. CORTICOSTEROIDS [Concomitant]

REACTIONS (1)
  - Lupus-like syndrome [Recovered/Resolved]

NARRATIVE: CASE EVENT DATE: 20051026
